FAERS Safety Report 4626636-0 (Version None)
Quarter: 2005Q1

REPORT INFORMATION
  Report Type: 
  Country: None (occurrence: None)
  Receive Date: 20050330
  Receipt Date: 20050318
  Transmission Date: 20050727
  Serious: Yes (Hospitalization, Other)
  Sender: FDA-Public Use
  Company Number: 200511130BCC

PATIENT
  Age: 83 Year
  Sex: Male
  Weight: 65.4087 kg

DRUGS (4)
  1. ASPIRIN [Suspect]
     Indication: CORONARY ARTERY DISEASE
     Dosage: 325 MG, ORAL
     Route: 048
     Dates: start: 20040101, end: 20050206
  2. ASPIRIN [Suspect]
     Indication: PROPHYLAXIS
     Dosage: 325 MG, ORAL
     Route: 048
     Dates: start: 20040101, end: 20050206
  3. HEPARIN [Suspect]
     Indication: ACUTE CORONARY SYNDROME
     Dosage: SEE IMAGE
     Route: 040
     Dates: start: 20050125, end: 20050128
  4. HEPARIN [Suspect]
     Indication: ACUTE CORONARY SYNDROME
     Dosage: SEE IMAGE
     Route: 040
     Dates: start: 20050125

REACTIONS (10)
  - BLOOD PRESSURE DECREASED [None]
  - CORONARY ARTERY DISEASE [None]
  - GASTROINTESTINAL ULCER [None]
  - HAEMATOCRIT DECREASED [None]
  - HAEMOGLOBIN DECREASED [None]
  - ISCHAEMIA [None]
  - MELAENA [None]
  - MUSCLE SPASMS [None]
  - MYOCARDIAL INFARCTION [None]
  - PROCEDURAL COMPLICATION [None]
